FAERS Safety Report 12304308 (Version 2)
Quarter: 2016Q2

REPORT INFORMATION
  Report Type: Spontaneous
  Country: BR (occurrence: BR)
  Receive Date: 20160426
  Receipt Date: 20160429
  Transmission Date: 20160815
  Serious: Yes (Death, Hospitalization)
  Sender: FDA-Public Use
  Company Number: BR-PFIZER INC-2015256585

PATIENT
  Age: 79 Year
  Sex: Male
  Weight: 60 kg

DRUGS (7)
  1. SUTENT [Suspect]
     Active Substance: SUNITINIB MALATE
     Indication: METASTATIC RENAL CELL CARCINOMA
     Dosage: 50 MG, ONE TABLET DAILY, CYCLIC 2X1
     Route: 048
     Dates: end: 20160205
  2. DIPYRONE [Concomitant]
     Active Substance: DIPYRONE
     Indication: PAIN
     Dosage: UNK
  3. LACTULOSE. [Concomitant]
     Active Substance: LACTULOSE
     Dosage: UNK
  4. SUTENT [Suspect]
     Active Substance: SUNITINIB MALATE
     Dosage: 50 MG, CYCLE 4X2
  5. B COMPLEX (B50) [Concomitant]
     Dosage: UNK
  6. TRAMAL [Concomitant]
     Active Substance: TRAMADOL
     Indication: PAIN
     Dosage: UNK
  7. MORPHINE [Concomitant]
     Active Substance: MORPHINE
     Indication: PAIN
     Dosage: UNK

REACTIONS (17)
  - Emotional distress [Not Recovered/Not Resolved]
  - Weight decreased [Unknown]
  - Asthenia [Unknown]
  - Confusional state [Unknown]
  - Metastatic renal cell carcinoma [Fatal]
  - Skin sensitisation [Unknown]
  - Blood calcium decreased [Unknown]
  - Injury [Unknown]
  - Decreased appetite [Not Recovered/Not Resolved]
  - Blood glucose decreased [Unknown]
  - Anaemia [Unknown]
  - Abdominal discomfort [Unknown]
  - Skin lesion [Unknown]
  - Disease progression [Fatal]
  - Pain [Unknown]
  - Rash macular [Unknown]
  - Hypopnoea [Unknown]
